FAERS Safety Report 5148114-5 (Version None)
Quarter: 2006Q4

REPORT INFORMATION
  Report Type: 
  Country: None (occurrence: None)
  Receive Date: 20061110
  Receipt Date: 20060821
  Transmission Date: 20070319
  Serious: Yes (Hospitalization)
  Sender: FDA-Public Use
  Company Number: DE-ROCHE-460270

PATIENT
  Age: 44 Year
  Sex: Female
  Weight: 52 kg

DRUGS (3)
  1. CAPECITABINE [Suspect]
     Dosage: DAILY DOSE DIVIDED INTO TWO DOSES. DRUG GIVEN ON DAYS ONE TO FOURTEEN EVERY THREE WEEKS.
     Route: 048
     Dates: start: 20060327
  2. CAPECITABINE [Suspect]
     Route: 048
     Dates: start: 20060901
  3. BONDRONAT [Concomitant]
     Dosage: FREQUENCY= EVERY 21 DAYS
     Dates: start: 20050427

REACTIONS (8)
  - BLOOD SODIUM DECREASED [None]
  - HAEMATOCRIT DECREASED [None]
  - MEAN CELL HAEMOGLOBIN CONCENTRATION INCREASED [None]
  - PLATELET COUNT DECREASED [None]
  - RED BLOOD CELL COUNT DECREASED [None]
  - RENAL DISORDER [None]
  - RENAL FAILURE [None]
  - WHITE BLOOD CELL COUNT DECREASED [None]
